FAERS Safety Report 8698043 (Version 2)
Quarter: 2012Q4

REPORT INFORMATION
  Report Type: 
  Country: BR (occurrence: BR)
  Receive Date: 20120802
  Receipt Date: 20121206
  Transmission Date: 20130627
  Serious: Yes (Other)
  Sender: FDA-Public Use
  Company Number: BR-AMGEN-BRASP2012047275

PATIENT
  Age: 66 Year
  Sex: Female
  Weight: 102 kg

DRUGS (6)
  1. ENBREL [Suspect]
     Indication: RHEUMATOID ARTHRITIS
     Dosage: 50 mg, once weekly
     Route: 058
     Dates: start: 201207
  2. ARAVA [Concomitant]
     Indication: RHEUMATOID ARTHRITIS
     Dosage: 20 mg, 1x/day
  3. DEFLANIL [Concomitant]
     Indication: RHEUMATOID ARTHRITIS
     Dosage: 7.5mg, 1x/day
  4. LOSARTAN [Concomitant]
     Indication: BLOOD PRESSURE INCREASED
     Dosage: 50 mg, 1x/day
  5. OMEPRAZOLE [Concomitant]
     Indication: GASTRIC DISORDER
     Dosage: 20 mg, 1x/day
  6. OSCAL                              /00514701/ [Concomitant]
     Dosage: UNK, 1x/day

REACTIONS (10)
  - Lung disorder [Unknown]
  - Urinary tract infection [Unknown]
  - Cough [Not Recovered/Not Resolved]
  - Tongue disorder [Unknown]
  - Retching [Unknown]
  - Pruritus [Unknown]
  - Drug hypersensitivity [Unknown]
  - Injection site erythema [Unknown]
  - Injection site pruritus [Unknown]
  - Injection site discolouration [Unknown]
